FAERS Safety Report 8430643-X (Version None)
Quarter: 2012Q2

REPORT INFORMATION
  Report Type: 
  Country: None (occurrence: None)
  Receive Date: 20120612
  Receipt Date: 20120606
  Transmission Date: 20120825
  Serious: Yes (Other)
  Sender: FDA-Public Use
  Company Number: CO-PFIZER INC-2012137337

PATIENT
  Age: 56 Year
  Sex: Male

DRUGS (2)
  1. AVODART [Concomitant]
     Indication: PROSTATIC DISORDER
     Dosage: 1 CAPSULE DAILY OF 0.5 MG ORALLY
     Route: 048
     Dates: start: 20090101
  2. LYRICA [Suspect]
     Indication: PAIN
     Dosage: 150 MG, 1X/DAY
     Route: 048
     Dates: start: 20090101

REACTIONS (2)
  - SPINAL OPERATION [None]
  - HYPOACUSIS [None]
